FAERS Safety Report 16048843 (Version 9)
Quarter: 2023Q1

REPORT INFORMATION
  Report Type: Spontaneous
  Country: IT (occurrence: IT)
  Receive Date: 20190307
  Receipt Date: 20230221
  Transmission Date: 20230417
  Serious: Yes (Hospitalization, Other)
  Sender: FDA-Public Use
  Company Number: PHHY2019IT048285

PATIENT
  Sex: Female
  Weight: 77 kg

DRUGS (30)
  1. DOCETAXEL [Suspect]
     Active Substance: DOCETAXEL
     Indication: HER2 positive breast cancer
     Dosage: 75 MG/M2, TIW (ON 06/DEC/2017, SHE RECEIVED MOST RECENT DOSE OF DOCETAXEL.)
     Route: 042
     Dates: start: 20170726, end: 20170906
  2. DOCETAXEL [Suspect]
     Active Substance: DOCETAXEL
     Dosage: 100 MG, TIW
     Route: 042
     Dates: start: 20170906, end: 20170927
  3. DOCETAXEL [Suspect]
     Active Substance: DOCETAXEL
     Dosage: 65 MG/M2, TIW
     Route: 042
     Dates: start: 20171206, end: 20180126
  4. LETROZOLE [Suspect]
     Active Substance: LETROZOLE
     Indication: HER2 positive breast cancer
     Dosage: 2.5 MG,QD
     Route: 048
     Dates: start: 20180209
  5. TAXOTERE [Suspect]
     Active Substance: DOCETAXEL
     Indication: Breast cancer metastatic
     Dosage: 75 MG/M2, Q3W
     Route: 042
     Dates: start: 20170726
  6. TAXOTERE [Suspect]
     Active Substance: DOCETAXEL
     Dosage: 75 MG/M2, Q3W
     Route: 042
     Dates: start: 20170906
  7. TRASTUZUMAB [Suspect]
     Active Substance: TRASTUZUMAB
     Indication: HER2 positive breast cancer
     Dosage: 600 MG, Q3W (MOST RECENT DOSE PRIOR TO THE EVENT: 5/JAN/2018)
     Route: 042
     Dates: start: 20170726, end: 20170726
  8. TRASTUZUMAB [Suspect]
     Active Substance: TRASTUZUMAB
     Dosage: 6 MG/KG, TIW
     Route: 042
     Dates: start: 20170818, end: 20171018
  9. TRASTUZUMAB [Suspect]
     Active Substance: TRASTUZUMAB
     Dosage: 560 MG, TIW
     Route: 042
     Dates: start: 20171206, end: 20171206
  10. TRASTUZUMAB [Suspect]
     Active Substance: TRASTUZUMAB
     Dosage: 6 MG/KG, TIW
     Route: 042
     Dates: start: 20180105, end: 20210503
  11. PERTUZUMAB [Suspect]
     Active Substance: PERTUZUMAB
     Indication: HER2 positive breast cancer
     Dosage: 840 MG, TIW (MOST RECENT DOSE PRIOR TO THE EVENT: 05/OCT/2018 )
     Route: 042
     Dates: start: 20170818, end: 20170818
  12. PERTUZUMAB [Suspect]
     Active Substance: PERTUZUMAB
     Dosage: 420 MG, TIW
     Route: 042
     Dates: start: 20170906, end: 20171018
  13. PERTUZUMAB [Suspect]
     Active Substance: PERTUZUMAB
     Dosage: 420 MG, TIW
     Route: 042
     Dates: start: 20180105, end: 20210503
  14. PERTUZUMAB [Suspect]
     Active Substance: PERTUZUMAB
     Dosage: 840 MG, TIW
     Route: 042
     Dates: start: 20171206, end: 20171206
  15. VALPROIC ACID [Concomitant]
     Active Substance: VALPROIC ACID
     Indication: Product used for unknown indication
     Dosage: UNK
     Route: 065
     Dates: start: 20190128
  16. LEVOTHYROXINE SODIUM [Concomitant]
     Active Substance: LEVOTHYROXINE SODIUM
     Indication: Product used for unknown indication
     Dosage: UNK
     Route: 065
  17. UREA [Concomitant]
     Active Substance: UREA
     Indication: Pruritus
     Dosage: UNK (ONGOING = NOT CHECKED)
     Route: 065
     Dates: start: 20180926, end: 20190110
  18. LOPERAMIDE [Concomitant]
     Active Substance: LOPERAMIDE
     Indication: Diarrhoea
     Dosage: UNK (ONGOING = CHECKED)
     Route: 065
     Dates: start: 20170906, end: 20191018
  19. LOPERAMIDE [Concomitant]
     Active Substance: LOPERAMIDE
     Dosage: UNK (ONGOING = CHECKED)
     Route: 065
     Dates: start: 20180126
  20. KCL [Concomitant]
     Active Substance: POTASSIUM CHLORIDE
     Indication: Product used for unknown indication
     Dosage: UNK (ONGOING = CHECKED)
     Route: 065
     Dates: start: 20180427
  21. KCL [Concomitant]
     Active Substance: POTASSIUM CHLORIDE
     Dosage: UNK (ONGOING = CHECKED)
     Route: 065
     Dates: start: 20210731
  22. TELMISARTAN [Concomitant]
     Active Substance: TELMISARTAN
     Indication: Product used for unknown indication
     Dosage: UNK
     Route: 065
     Dates: start: 20100310
  23. CHLORPHENIRAMINE MALEATE [Concomitant]
     Active Substance: CHLORPHENIRAMINE MALEATE
     Indication: Product used for unknown indication
     Dosage: UNK
     Route: 065
     Dates: start: 20170726
  24. CETIRIZINE HYDROCHLORIDE [Concomitant]
     Active Substance: CETIRIZINE HYDROCHLORIDE
     Indication: Pruritus
     Dosage: UNK (STOP DATE: 15 DEC 2018)
     Route: 065
     Dates: start: 20181002
  25. POTASSIUM ASPARTATE [Concomitant]
     Active Substance: POTASSIUM ASPARTATE
     Indication: Hypokalaemia
     Dosage: UNK
     Route: 065
     Dates: start: 20200130
  26. VALPROATE SODIUM [Concomitant]
     Active Substance: VALPROATE SODIUM
     Indication: Product used for unknown indication
     Dosage: UNK (LAST DOSE DATE: 27 JAN 2019) (ONGOING = CHECKED)
     Route: 065
     Dates: start: 20181108
  27. MAGNESIUM SULFATE [Concomitant]
     Active Substance: MAGNESIUM SULFATE
     Indication: Hypomagnesaemia
     Dosage: UNK
     Route: 065
     Dates: start: 20200403, end: 20210503
  28. SOLIFENACINA [Concomitant]
     Indication: Urinary incontinence
     Dosage: UNK
     Route: 065
     Dates: start: 20200731
  29. MAGNESIUM [Concomitant]
     Active Substance: MAGNESIUM
     Indication: Hypomagnesaemia
     Dosage: UNK (ONGOING=CHECKED)
     Route: 065
     Dates: start: 20210322
  30. MAGNESIUM [Concomitant]
     Active Substance: MAGNESIUM
     Dosage: UNK (ONGOING=CHECKED)
     Route: 065
     Dates: start: 20180427

REACTIONS (2)
  - Major depression [Recovered/Resolved]
  - Major depression [Recovered/Resolved]

NARRATIVE: CASE EVENT DATE: 20171113
